FAERS Safety Report 25528062 (Version 3)
Quarter: 2025Q3

REPORT INFORMATION
  Report Type: Report from Study
  Country: CN (occurrence: CN)
  Receive Date: 20250708
  Receipt Date: 20250722
  Transmission Date: 20251020
  Serious: Yes (Hospitalization, Other)
  Sender: ABBVIE
  Company Number: CN-ABBVIE-6356320

PATIENT
  Age: 60 Year
  Sex: Male
  Weight: 60 kg

DRUGS (2)
  1. RINVOQ [Suspect]
     Active Substance: UPADACITINIB
     Indication: Dermatitis atopic
     Dosage: STRENGTH: 15 MILLIGRAM?PROLONG RELEASED TABLET
     Route: 048
     Dates: start: 20250323, end: 20250419
  2. PREDNISONE [Concomitant]
     Active Substance: PREDNISONE
     Indication: Dermatitis atopic
     Route: 048
     Dates: start: 2014, end: 202502

REACTIONS (12)
  - Pneumonia [Recovered/Resolved]
  - Productive cough [Recovered/Resolved]
  - Sleep disorder [Not Recovered/Not Resolved]
  - Dyspnoea [Recovered/Resolved]
  - Haemoptysis [Recovered/Resolved]
  - Dyschezia [Not Recovered/Not Resolved]
  - Cough [Recovered/Resolved]
  - Respiratory failure [Recovered/Resolved]
  - Pneumonia staphylococcal [Recovered/Resolved]
  - Sepsis [Recovered/Resolved]
  - Pyrexia [Recovered/Resolved]
  - Corynebacterium infection [Recovered/Resolved]

NARRATIVE: CASE EVENT DATE: 20250301
